FAERS Safety Report 22533385 (Version 1)
Quarter: 2023Q2

REPORT INFORMATION
  Report Type: Report from Study
  Country: CA (occurrence: CA)
  Receive Date: 20230608
  Receipt Date: 20230608
  Transmission Date: 20230722
  Serious: Yes (Life-Threatening, Hospitalization)
  Sender: FDA-Public Use
  Company Number: CA-AUROBINDO-AUR-APL-2023-034155

PATIENT
  Sex: Male

DRUGS (6)
  1. CARVEDILOL [Suspect]
     Active Substance: CARVEDILOL
     Indication: Cytogenetic abnormality
     Dosage: UNK
     Route: 065
  2. CARVEDILOL [Suspect]
     Active Substance: CARVEDILOL
     Indication: Arrhythmia supraventricular
  3. FLECAINIDE [Suspect]
     Active Substance: FLECAINIDE
     Indication: Cytogenetic abnormality
     Dosage: UNK
     Route: 065
  4. FLECAINIDE [Suspect]
     Active Substance: FLECAINIDE
     Indication: Arrhythmia supraventricular
  5. DIGOXIN [Suspect]
     Active Substance: DIGOXIN
     Indication: Cytogenetic abnormality
     Dosage: UNK
     Route: 065
  6. METOPROLOL [Suspect]
     Active Substance: METOPROLOL
     Indication: Cytogenetic abnormality
     Dosage: UNK
     Route: 065

REACTIONS (1)
  - Drug ineffective [Unknown]
